FAERS Safety Report 20093832 (Version 1)
Quarter: 2021Q4

REPORT INFORMATION
  Report Type: Spontaneous
  Country: US (occurrence: US)
  Receive Date: 20211121
  Receipt Date: 20211121
  Transmission Date: 20220303
  Serious: No
  Sender: FDA-Public Use
  Company Number: US-Orient Pharma-000063

PATIENT
  Age: 84 Year
  Sex: Female
  Weight: 69.9 kg

DRUGS (9)
  1. VANCOMYCIN HYDROCHLORIDE [Suspect]
     Active Substance: VANCOMYCIN HYDROCHLORIDE
     Indication: Product used for unknown indication
     Dosage: STRENGTH: 125MG, 1 CAPSULE EVERY 6 HOURS
     Route: 048
     Dates: start: 20210902
  2. OZEMPIC [Concomitant]
     Active Substance: SEMAGLUTIDE
  3. VICTOZA [Concomitant]
     Active Substance: LIRAGLUTIDE
  4. ELIQUIS [Concomitant]
     Active Substance: APIXABAN
  5. CLOPIDOGREL [Concomitant]
     Active Substance: CLOPIDOGREL BISULFATE
  6. ATORVASTATIN [Concomitant]
     Active Substance: ATORVASTATIN
  7. TORSEMIDE [Concomitant]
     Active Substance: TORSEMIDE
  8. MACITENTAN [Concomitant]
     Active Substance: MACITENTAN
  9. VITAMIN D NOS [Concomitant]
     Active Substance: VITAMIN D NOS

REACTIONS (2)
  - Skin haemorrhage [Not Recovered/Not Resolved]
  - Pruritus [Not Recovered/Not Resolved]

NARRATIVE: CASE EVENT DATE: 20210902
